FAERS Safety Report 6957229-8 (Version None)
Quarter: 2010Q3

REPORT INFORMATION
  Report Type: 
  Country: None (occurrence: None)
  Receive Date: 20100826
  Receipt Date: 20100811
  Transmission Date: 20110219
  Serious: Yes (Other)
  Sender: FDA-Public Use
  Company Number: 8036233

PATIENT
  Sex: Male
  Weight: 7.6 kg

DRUGS (4)
  1. KEPPRA [Suspect]
     Dosage: (1000 MG BID TRANSPLACENTAL), (1250 MG BID TRANSPLACENTAL), (1250 MG BID TRANSMAMMARY)
     Dates: end: 20070312
  2. KEPPRA [Suspect]
     Dosage: (1000 MG BID TRANSPLACENTAL), (1250 MG BID TRANSPLACENTAL), (1250 MG BID TRANSMAMMARY)
     Dates: start: 20070313, end: 20070607
  3. FOLIC ACID [Suspect]
     Dosage: (DOSE FREQ.: DAILY TRANSPLACENTAL)
     Dates: end: 20070607
  4. PRENATAL VITAMINS [Concomitant]

REACTIONS (3)
  - DRUG EXPOSURE VIA BREAST MILK [None]
  - MATERNAL DRUGS AFFECTING FOETUS [None]
  - WEIGHT GAIN POOR [None]
